FAERS Safety Report 12126319 (Version 3)
Quarter: 2016Q1

REPORT INFORMATION
  Report Type: Spontaneous
  Country: US (occurrence: US)
  Receive Date: 20160229
  Receipt Date: 20160328
  Transmission Date: 20160526
  Serious: Yes (Life-Threatening, Other)
  Sender: FDA-Public Use
  Company Number: US-BAYER-2016-034328

PATIENT
  Age: 63 Year
  Sex: Male

DRUGS (1)
  1. GADAVIST [Suspect]
     Active Substance: GADOBUTROL
     Indication: NUCLEAR MAGNETIC RESONANCE IMAGING HEART
     Dosage: 20 ML, ONCE
     Route: 042

REACTIONS (6)
  - Pulmonary oedema [Recovered/Resolved]
  - Anaphylactic reaction [Recovered/Resolved]
  - Hypokalaemia [Recovered/Resolved]
  - Bundle branch block left [Recovered/Resolved]
  - Respiratory arrest [Recovered/Resolved]
  - Hypotension [Recovered/Resolved]
